FAERS Safety Report 25438593 (Version 1)
Quarter: 2025Q2

REPORT INFORMATION
  Report Type: Spontaneous
  Country: GB (occurrence: GB)
  Receive Date: 20250616
  Receipt Date: 20250616
  Transmission Date: 20250717
  Serious: Yes (Hospitalization, Other)
  Sender: Unknown Manufacturer
  Company Number: None

PATIENT
  Age: 87 Year

DRUGS (4)
  1. LEVETIRACETAM [Suspect]
     Active Substance: LEVETIRACETAM
     Indication: Product used for unknown indication
     Dosage: 1G TABLETS, ONE TO BE TAKEN TWICE A DAY (ALONG WITH 500MG- TOTAL OF 1500MG TWICE DAILY)?500MG TABLET
  2. CLOBAZAM [Concomitant]
     Active Substance: CLOBAZAM
     Indication: Product used for unknown indication
     Dosage: 10MG TABLETS, HALF A TABLET TWICE A DAY
  3. ASPIRIN [Concomitant]
     Active Substance: ASPIRIN
     Indication: Product used for unknown indication
     Dosage: 75MG DISPERSIBLE TABLETS, TAKE ONE DAILY
  4. ATORVASTATIN [Concomitant]
     Active Substance: ATORVASTATIN
     Indication: Product used for unknown indication
     Dosage: 20MG TABLETS, ONE TO BE TAKEN EACH NIGHT

REACTIONS (3)
  - Electrocardiogram QT prolonged [Unknown]
  - Neuropsychological symptoms [Unknown]
  - Aggression [Unknown]
